FAERS Safety Report 16001721 (Version 2)
Quarter: 2019Q3

REPORT INFORMATION
  Report Type: Spontaneous
  Country: US (occurrence: US)
  Receive Date: 20190225
  Receipt Date: 20190813
  Transmission Date: 20191004
  Serious: Yes (Other)
  Sender: FDA-Public Use
  Company Number: US-ALLERGAN-1846122US

PATIENT
  Sex: Male

DRUGS (20)
  1. NUCYNTA [Suspect]
     Active Substance: TAPENTADOL HYDROCHLORIDE
     Indication: MATERNAL EXPOSURE DURING PREGNANCY
     Route: 064
  2. DURAGESIC [Suspect]
     Active Substance: FENTANYL
     Indication: MATERNAL EXPOSURE DURING PREGNANCY
     Route: 064
  3. KADIAN [Suspect]
     Active Substance: MORPHINE SULFATE
     Indication: MATERNAL EXPOSURE TIMING UNSPECIFIED
     Dosage: UNK
     Route: 064
     Dates: end: 2015
  4. PERCOCET [Suspect]
     Active Substance: ACETAMINOPHEN\OXYCODONE HYDROCHLORIDE
     Indication: MATERNAL EXPOSURE DURING PREGNANCY
     Route: 064
  5. ZYDONE [Suspect]
     Active Substance: ACETAMINOPHEN\HYDROCODONE BITARTRATE
     Indication: MATERNAL EXPOSURE DURING PREGNANCY
     Route: 064
  6. OXYCODONE [Suspect]
     Active Substance: OXYCODONE
     Indication: MATERNAL EXPOSURE DURING PREGNANCY
     Route: 064
  7. OXYMORPHONE [Suspect]
     Active Substance: OXYMORPHONE
     Indication: MATERNAL EXPOSURE DURING PREGNANCY
     Route: 064
  8. OXYCONTIN [Suspect]
     Active Substance: OXYCODONE HYDROCHLORIDE
     Indication: MATERNAL EXPOSURE TIMING UNSPECIFIED
  9. MS CONTIN [Suspect]
     Active Substance: MORPHINE SULFATE
     Indication: MATERNAL EXPOSURE DURING PREGNANCY
     Route: 064
  10. DILAUDID [Suspect]
     Active Substance: HYDROMORPHONE HYDROCHLORIDE
     Indication: MATERNAL EXPOSURE DURING PREGNANCY
     Route: 064
  11. NALOXONE HCL W/OXYCODONE HCL [Suspect]
     Active Substance: NALOXONE HYDROCHLORIDE\OXYCODONE HYDROCHLORIDE
     Indication: MATERNAL EXPOSURE DURING PREGNANCY
     Route: 064
  12. HYDROMORPHONE [Suspect]
     Active Substance: HYDROMORPHONE
     Indication: MATERNAL EXPOSURE DURING PREGNANCY
     Route: 064
  13. BUTRANS [Suspect]
     Active Substance: BUPRENORPHINE
     Indication: MATERNAL EXPOSURE DURING PREGNANCY
     Route: 064
  14. ACTIQ [Suspect]
     Active Substance: FENTANYL CITRATE
     Indication: MATERNAL EXPOSURE DURING PREGNANCY
     Route: 064
  15. HYDROCODONE BITARTRATE. [Suspect]
     Active Substance: HYDROCODONE BITARTRATE
     Indication: MATERNAL EXPOSURE DURING PREGNANCY
     Route: 064
  16. FENTORA [Suspect]
     Active Substance: FENTANYL CITRATE
     Indication: MATERNAL EXPOSURE DURING PREGNANCY
     Route: 064
  17. NORCO [Suspect]
     Active Substance: ACETAMINOPHEN\HYDROCODONE BITARTRATE
     Indication: MATERNAL EXPOSURE TIMING UNSPECIFIED
     Dosage: UNK
     Route: 064
     Dates: end: 2015
  18. PERCODAN [Suspect]
     Active Substance: ASPIRIN\OXYCODONE HYDROCHLORIDE
     Indication: MATERNAL EXPOSURE DURING PREGNANCY
     Route: 064
  19. OPANA [Suspect]
     Active Substance: OXYMORPHONE HYDROCHLORIDE
     Indication: MATERNAL EXPOSURE DURING PREGNANCY
     Route: 064
  20. HYDROCODONE [Suspect]
     Active Substance: HYDROCODONE
     Indication: MATERNAL EXPOSURE DURING PREGNANCY
     Route: 064

REACTIONS (1)
  - Drug withdrawal syndrome neonatal [Unknown]

NARRATIVE: CASE EVENT DATE: 2015
